FAERS Safety Report 8016657-2 (Version None)
Quarter: 2012Q1

REPORT INFORMATION
  Report Type: 
  Country: None (occurrence: None)
  Receive Date: 20120102
  Receipt Date: 20111229
  Transmission Date: 20120608
  Serious: Yes (Death)
  Sender: FDA-Public Use
  Company Number: US-BRISTOL-MYERS SQUIBB COMPANY-16280653

PATIENT
  Age: 74 Year
  Sex: Female

DRUGS (14)
  1. METOPROLOL [Concomitant]
  2. DETROL LA [Concomitant]
     Dosage: DAILY
  3. LEVOTHYROXINE SODIUM [Concomitant]
  4. HYDROCHLOROTHIAZIDE [Concomitant]
  5. EYE DROPS [Concomitant]
     Route: 047
  6. BUMETANIDE [Concomitant]
  7. ORENCIA [Suspect]
     Indication: RHEUMATOID ARTHRITIS
     Route: 042
     Dates: start: 20111208, end: 20111208
  8. LEUCOVORIN CALCIUM [Concomitant]
     Dosage: 2 Q SATURDAY
  9. VIGAMOX [Concomitant]
  10. AMOXICILLIN [Concomitant]
     Dosage: PRIOR TO DENTAL WORK
  11. CELEBREX [Concomitant]
  12. METHOTREXATE [Concomitant]
     Dosage: 3 TID ON FRIDAY
  13. KLOR-CON [Concomitant]
  14. PREDNISONE [Concomitant]

REACTIONS (2)
  - GRAND MAL CONVULSION [None]
  - ANAPHYLACTIC REACTION [None]
